FAERS Safety Report 5721792-5 (Version None)
Quarter: 2008Q2

REPORT INFORMATION
  Report Type: 
  Country: None (occurrence: None)
  Receive Date: 20080429
  Receipt Date: 20070423
  Transmission Date: 20081010
  Serious: No
  Sender: FDA-Public Use
  Company Number: US-ASTRAZENECA-2007UW07868

PATIENT
  Age: 81 Year
  Sex: Male
  Weight: 69.9 kg

DRUGS (5)
  1. NEXIUM [Suspect]
     Indication: DYSPEPSIA
     Route: 048
     Dates: start: 20070420
  2. LOVASTATIN [Concomitant]
  3. TEMAZEPAM [Concomitant]
  4. DIOVAN [Concomitant]
  5. GAVISCON [Concomitant]

REACTIONS (3)
  - ABDOMINAL PAIN UPPER [None]
  - HEADACHE [None]
  - HYPOAESTHESIA EYE [None]
